FAERS Safety Report 11296457 (Version 1)
Quarter: 2015Q3

REPORT INFORMATION
  Report Type: Spontaneous
  Country: US (occurrence: US)
  Receive Date: 20150722
  Receipt Date: 20150722
  Transmission Date: 20151125
  Serious: No
  Sender: FDA-Public Use
  Company Number: US-ELI_LILLY_AND_COMPANY-US200911000920

PATIENT
  Sex: Male
  Weight: 97.05 kg

DRUGS (2)
  1. EFFIENT [Suspect]
     Active Substance: PRASUGREL HYDROCHLORIDE
     Dosage: 10 MG, UNK
     Dates: start: 20090917, end: 20091028
  2. PREDNISONE. [Concomitant]
     Active Substance: PREDNISONE
     Dosage: 60 MG, UNK

REACTIONS (14)
  - Malaise [Unknown]
  - Chest discomfort [Recovered/Resolved]
  - Rash [Unknown]
  - Vision blurred [Recovered/Resolved]
  - Muscle spasms [Recovered/Resolved]
  - Flushing [Recovered/Resolved]
  - Nausea [Recovered/Resolved]
  - Aspartate aminotransferase increased [Unknown]
  - Urine abnormality [Unknown]
  - Alanine aminotransferase increased [Unknown]
  - Hyperhidrosis [Recovered/Resolved]
  - Dysphonia [Unknown]
  - White blood cell count increased [Unknown]
  - Anxiety [Unknown]
